FAERS Safety Report 8391660 (Version 2)
Quarter: 2013Q1

REPORT INFORMATION
  Report Type: Spontaneous
  Country: US (occurrence: None)
  Receive Date: 20120124
  Receipt Date: 20121018
  Transmission Date: 20140127
  Serious: Yes (Hospitalization, Other)
  Sender: FDA-Public Use
  Company Number: AUR-APL-2012-00542

PATIENT
  Age: 65 Year
  Sex: Male

DRUGS (4)
  1. BENAZEPRIL HYDROCHLORIDE [Suspect]
     Indication: HYPERTENSION
     Route: 048
     Dates: start: 2005, end: 200801
  2. METOPROLOL [Concomitant]
     Dosage: 40/12.5 MG, 1X/DAY, ORAL
     Route: 048
     Dates: start: 2002, end: 2005
  3. BENICAR (OLMESARTAN MEDOXOMIL) [Concomitant]
     Route: 048
     Dates: start: 2005, end: 200801
  4. HUMULIN 70/30 (HUMAN MIXTARD /00806401/) [Concomitant]

REACTIONS (5)
  - Angioedema [None]
  - Dyspnoea [None]
  - Rash erythematous [None]
  - Urticaria [None]
  - Blood immunoglobulin E increased [None]
